FAERS Safety Report 7971367-2 (Version None)
Quarter: 2011Q4

REPORT INFORMATION
  Report Type: 
  Country: None (occurrence: None)
  Receive Date: 20111123
  Receipt Date: 20110928
  Transmission Date: 20120403
  Serious: Yes (Hospitalization)
  Sender: FDA-Public Use
  Company Number: 1000024296

PATIENT
  Age: 69 Year
  Sex: Female

DRUGS (9)
  1. METFORMIN ER (METFORMIN HYDROCHLORIDE) [Concomitant]
  2. DALIRESP [Suspect]
     Indication: CHRONIC OBSTRUCTIVE PULMONARY DISEASE
     Dosage: 500 MCG (500 MCG, 1 IN 1 D), ORAL
     Route: 048
     Dates: start: 20110901, end: 20110901
  3. DALIRESP [Suspect]
     Indication: ASTHMA
     Dosage: 500 MCG (500 MCG, 1 IN 1 D), ORAL
     Route: 048
     Dates: start: 20110901, end: 20110901
  4. NORCO [Concomitant]
  5. VENTOLIN [Concomitant]
  6. PEPCID [Concomitant]
  7. RANITIDINE [Concomitant]
  8. LEVOTHYROXINE SODIUM [Concomitant]
  9. PREDNISONE TAB [Concomitant]

REACTIONS (3)
  - ABDOMINAL PAIN [None]
  - VOMITING [None]
  - DIARRHOEA [None]
